FAERS Safety Report 21569704 (Version 2)
Quarter: 2023Q1

REPORT INFORMATION
  Report Type: Report from Study
  Country: US (occurrence: US)
  Receive Date: 20221109
  Receipt Date: 20230102
  Transmission Date: 20230417
  Serious: No
  Sender: FDA-Public Use
  Company Number: US-ABBVIE-4191224

PATIENT
  Sex: Female

DRUGS (3)
  1. VENCLEXTA [Suspect]
     Active Substance: VENETOCLAX
     Indication: Follicular lymphoma stage I
     Dosage: TAKE 1 TABLET BY MOUTH ON DAY 1, TAKE 2 TABLET(S) BY MOUTH ON DAY 2?150MG
     Route: 048
  2. VENCLEXTA [Suspect]
     Active Substance: VENETOCLAX
     Indication: Follicular lymphoma stage I
     Dosage: TAKE 1 TABLET BY MOUTH ON DAYS 1-14 EVERY 28 DAY(S)?100 MG
     Route: 048
  3. CLARITIN [Concomitant]
     Active Substance: LORATADINE
     Indication: Product used for unknown indication

REACTIONS (4)
  - Fatigue [Unknown]
  - White blood cell count decreased [Unknown]
  - Off label use [Unknown]
  - Bone pain [Unknown]
